FAERS Safety Report 7670792-7 (Version None)
Quarter: 2011Q3

REPORT INFORMATION
  Report Type: 
  Country: None (occurrence: None)
  Receive Date: 20110809
  Receipt Date: 20110802
  Transmission Date: 20111222
  Serious: Yes (Other)
  Sender: FDA-Public Use
  Company Number: US-JNJFOC-20110203041

PATIENT
  Sex: Female

DRUGS (1)
  1. LEVAQUIN [Suspect]
     Indication: PNEUMONIA
     Route: 048
     Dates: start: 20091201

REACTIONS (4)
  - ASTHENIA [None]
  - ROTATOR CUFF SYNDROME [None]
  - FLUID RETENTION [None]
  - TENDON RUPTURE [None]
